FAERS Safety Report 4421448-5 (Version None)
Quarter: 2004Q3

REPORT INFORMATION
  Report Type: 
  Country: None (occurrence: None)
  Receive Date: 20040709
  Receipt Date: 20040527
  Transmission Date: 20050211
  Serious: No
  Sender: FDA-Public Use
  Company Number: 2004S1000117

PATIENT
  Age: 50 Year
  Sex: Female
  Weight: 136.4 kg

DRUGS (2)
  1. CUBICIN [Suspect]
     Indication: WOUND INFECTION STAPHYLOCOCCAL
     Dosage: 4 MG/KG; Q24H; IV
     Route: 042
     Dates: start: 20040518, end: 20040524
  2. VANCOMYCIN [Concomitant]

REACTIONS (6)
  - DYSPHAGIA [None]
  - EOSINOPHILIA [None]
  - HYPERSENSITIVITY [None]
  - HYPOACUSIS [None]
  - PRURITUS [None]
  - RASH [None]
